FAERS Safety Report 10101207 (Version 1)
Quarter: 2014Q2

REPORT INFORMATION
  Report Type: Spontaneous
  Country: IT (occurrence: None)
  Receive Date: 20140422
  Receipt Date: 20140422
  Transmission Date: 20141212
  Serious: Yes (Death)
  Sender: FDA-Public Use
  Company Number: VAL_03077_2014

PATIENT
  Age: 36 Year
  Sex: Female

DRUGS (2)
  1. METHERGINE [Suspect]
     Indication: PRODUCT USED FOR UNKNOWN INDICATION
     Dosage: DF
     Route: 042
     Dates: start: 20140409, end: 20140409
  2. CERVIDIL [Suspect]
     Indication: ABORTION INDUCED
     Dosage: DF
     Dates: start: 20140409, end: 20140409

REACTIONS (1)
  - Pulmonary embolism [None]
